FAERS Safety Report 25135022 (Version 1)
Quarter: 2025Q1

REPORT INFORMATION
  Report Type: Spontaneous
  Country: CN (occurrence: CN)
  Receive Date: 20250328
  Receipt Date: 20250328
  Transmission Date: 20250408
  Serious: Yes (Other)
  Sender: NOVARTIS
  Company Number: CN-002147023-NVSC2025CN050072

PATIENT
  Age: 10 Year
  Sex: Male

DRUGS (7)
  1. CYCLOSPORINE [Suspect]
     Active Substance: CYCLOSPORINE
     Indication: Immunosuppression
     Dosage: 100 MG, Q12H
     Route: 048
     Dates: start: 20241008
  2. CYCLOSPORINE [Suspect]
     Active Substance: CYCLOSPORINE
     Dosage: 75 MG, BID (Q12H)
     Route: 048
     Dates: start: 20241025, end: 20241030
  3. CYCLOSPORINE [Suspect]
     Active Substance: CYCLOSPORINE
     Dosage: 75 MG, BID
     Route: 048
     Dates: start: 20241030, end: 20241104
  4. CYCLOSPORINE [Suspect]
     Active Substance: CYCLOSPORINE
     Dosage: 75 MG, BID (Q12H)
     Route: 048
     Dates: start: 20241118, end: 20241127
  5. CYCLOSPORINE [Suspect]
     Active Substance: CYCLOSPORINE
     Dosage: 50 MG, TID (Q8H)
     Route: 048
     Dates: start: 20241127, end: 20241202
  6. TACROLIMUS [Concomitant]
     Active Substance: TACROLIMUS
     Indication: Immunosuppression
     Dosage: 1.5 MG, BID (SUSTAINED-RELEASE CAPSULES)
     Route: 048
     Dates: start: 20241202, end: 20241224
  7. AVATROMBOPAG [Concomitant]
     Active Substance: AVATROMBOPAG
     Indication: Platelet count decreased
     Dosage: 20 MG, QD
     Route: 048
     Dates: start: 20241030, end: 20241224

REACTIONS (3)
  - Blood creatinine increased [Recovering/Resolving]
  - Nephropathy toxic [Unknown]
  - Blood uric acid increased [Unknown]

NARRATIVE: CASE EVENT DATE: 20241105
